FAERS Safety Report 18566359 (Version 1)
Quarter: 2020Q4

REPORT INFORMATION
  Report Type: Report from Study
  Country: US (occurrence: US)
  Receive Date: 20201201
  Receipt Date: 20201201
  Transmission Date: 20210114
  Serious: Yes (Hospitalization, Other)
  Sender: FDA-Public Use
  Company Number: US-TAKEDA-2020TUS051722

PATIENT
  Sex: Female

DRUGS (1)
  1. VON WILLEBRAND FACTOR [Suspect]
     Active Substance: VON WILLEBRAND FACTOR HUMAN
     Indication: PRODUCT USED FOR UNKNOWN INDICATION
     Route: 065

REACTIONS (5)
  - Foetal exposure during pregnancy [Unknown]
  - Haemorrhage [Unknown]
  - Asthma [Unknown]
  - Respiratory syncytial virus test positive [Unknown]
  - Coronavirus test positive [Unknown]
